FAERS Safety Report 17367364 (Version 1)
Quarter: 2020Q1

REPORT INFORMATION
  Report Type: Spontaneous
  Country: SE (occurrence: SE)
  Receive Date: 20200204
  Receipt Date: 20200204
  Transmission Date: 20200409
  Serious: Yes (Other)
  Sender: FDA-Public Use
  Company Number: SE-PFIZER INC-2020041142

PATIENT
  Age: 40 Year
  Sex: Female

DRUGS (3)
  1. BISOCARD [Concomitant]
     Active Substance: BISOPROLOL
     Dosage: UNK
     Dates: start: 201604
  2. TOLTERODINE TARTRATE. [Suspect]
     Active Substance: TOLTERODINE TARTRATE
     Indication: MICTURITION URGENCY
     Dosage: 4 MG, 1X/DAY
     Dates: start: 20191212, end: 20191220
  3. OMEPRAZOLE. [Concomitant]
     Active Substance: OMEPRAZOLE
     Dosage: UNK
     Dates: start: 200707

REACTIONS (9)
  - Vision blurred [Recovering/Resolving]
  - Urticaria [Recovering/Resolving]
  - Respiratory distress [Recovering/Resolving]
  - Heart rate increased [Recovering/Resolving]
  - Eczema [Recovering/Resolving]
  - Dizziness [Recovering/Resolving]
  - Palpitations [Recovering/Resolving]
  - Syncope [Recovering/Resolving]
  - Diarrhoea [Recovering/Resolving]

NARRATIVE: CASE EVENT DATE: 20191213
